FAERS Safety Report 21336313 (Version 1)
Quarter: 2022Q3

REPORT INFORMATION
  Report Type: Spontaneous
  Country: US (occurrence: None)
  Receive Date: 20220914
  Receipt Date: 20220914
  Transmission Date: 20221027
  Serious: No
  Sender: FDA-Public Use
  Company Number: None

PATIENT
  Age: 85 Year
  Sex: Female

DRUGS (1)
  1. LENALIDOMIDE [Suspect]
     Active Substance: LENALIDOMIDE
     Indication: Plasma cell myeloma
     Dosage: FREQUENCY : DAILY;?
     Route: 048
     Dates: start: 20220815, end: 20220908

REACTIONS (5)
  - Contusion [None]
  - Pruritus [None]
  - Asthenia [None]
  - Fatigue [None]
  - Blood magnesium decreased [None]

NARRATIVE: CASE EVENT DATE: 20220908
